FAERS Safety Report 22916269 (Version 10)
Quarter: 2024Q1

REPORT INFORMATION
  Report Type: Report from Study
  Country: US (occurrence: US)
  Receive Date: 20230907
  Receipt Date: 20240219
  Transmission Date: 20240410
  Serious: Yes (Other)
  Sender: FDA-Public Use
  Company Number: US-002147023-NVSC2023US192841

PATIENT
  Sex: Female

DRUGS (1)
  1. KESIMPTA [Suspect]
     Active Substance: OFATUMUMAB
     Indication: Multiple sclerosis
     Dosage: UNK
     Route: 065

REACTIONS (21)
  - Pneumonia [Unknown]
  - Cough [Not Recovered/Not Resolved]
  - Myocardial infarction [Unknown]
  - Chest discomfort [Unknown]
  - Localised infection [Recovering/Resolving]
  - Formication [Unknown]
  - Arthropod bite [Recovering/Resolving]
  - Brain fog [Not Recovered/Not Resolved]
  - Alopecia [Unknown]
  - Skin odour abnormal [Unknown]
  - Mobility decreased [Recovering/Resolving]
  - Nerve compression [Unknown]
  - Pain [Unknown]
  - Blood cholesterol increased [Unknown]
  - Abdominal pain upper [Unknown]
  - Hypoaesthesia [Unknown]
  - Visual impairment [Unknown]
  - Peripheral coldness [Unknown]
  - Fatigue [Unknown]
  - Product storage error [Unknown]
  - Injection site pain [Unknown]
